FAERS Safety Report 6910269-7 (Version None)
Quarter: 2010Q3

REPORT INFORMATION
  Report Type: 
  Country: None (occurrence: None)
  Receive Date: 20100806
  Receipt Date: 20100804
  Transmission Date: 20110219
  Serious: Yes (Death, Hospitalization, Other)
  Sender: FDA-Public Use
  Company Number: US-B.I. PHARMACEUTICALS,INC./RIDGEFIELD-2010-BP-08849BP

PATIENT
  Sex: Male

DRUGS (15)
  1. SPIRIVA [Suspect]
     Indication: CHRONIC OBSTRUCTIVE PULMONARY DISEASE
     Dosage: 18 MCG
     Route: 055
     Dates: start: 20040101, end: 20100615
  2. ADVAIR DISKUS 100/50 [Concomitant]
  3. PROAIR HFA [Concomitant]
  4. JANUVIA [Concomitant]
  5. PLAVIX [Concomitant]
  6. FUROSEMIDE [Concomitant]
  7. POTASSIUM [Concomitant]
  8. ALLOPURINOL [Concomitant]
  9. OMEPRAZOLE [Concomitant]
  10. CARVEDILOL [Concomitant]
  11. TERAZOSIN HCL [Concomitant]
  12. ALPRAZOLAM [Concomitant]
  13. LIPITOR [Concomitant]
  14. AMLODIPINE [Concomitant]
  15. ASPIRIN [Concomitant]

REACTIONS (4)
  - ANAEMIA [None]
  - BRAIN NEOPLASM MALIGNANT [None]
  - LUNG NEOPLASM MALIGNANT [None]
  - PNEUMONIA [None]
